FAERS Safety Report 15539132 (Version 2)
Quarter: 2018Q4

REPORT INFORMATION
  Report Type: Spontaneous
  Country: CH (occurrence: CH)
  Receive Date: 20181022
  Receipt Date: 20181108
  Transmission Date: 20190205
  Serious: Yes (Other)
  Sender: FDA-Public Use
  Company Number: CH-LPDUSPRD-20181913

PATIENT
  Sex: Female

DRUGS (1)
  1. FERINJECT [Suspect]
     Active Substance: FERRIC CARBOXYMALTOSE
     Dosage: 500 MG
     Route: 042
     Dates: start: 201810

REACTIONS (6)
  - Seizure [Unknown]
  - Fall [Unknown]
  - Pyrexia [Unknown]
  - Malaise [Unknown]
  - Loss of consciousness [Unknown]
  - Unevaluable event [Unknown]

NARRATIVE: CASE EVENT DATE: 20181004
